FAERS Safety Report 5089760-7 (Version None)
Quarter: 2006Q3

REPORT INFORMATION
  Report Type: 
  Country: None (occurrence: None)
  Receive Date: 20060828
  Receipt Date: 20060713
  Transmission Date: 20061208
  Serious: Yes (Hospitalization, Other)
  Sender: FDA-Public Use
  Company Number: PHBS2006JP10588

PATIENT
  Age: 84 Year
  Sex: Female
  Weight: 38 kg

DRUGS (1)
  1. VOLTAREN [Suspect]
     Indication: NEURALGIA
     Dosage: 25 MG, ONCE/SINGLE
     Route: 048
     Dates: start: 20060710, end: 20060710

REACTIONS (13)
  - ANAPHYLACTIC SHOCK [None]
  - BLOOD CREATININE INCREASED [None]
  - BLOOD GLUCOSE INCREASED [None]
  - BLOOD PRESSURE DECREASED [None]
  - BLOOD UREA INCREASED [None]
  - DYSPNOEA [None]
  - EOSINOPHIL COUNT INCREASED [None]
  - GAMMA-GLUTAMYLTRANSFERASE DECREASED [None]
  - GENERALISED ERYTHEMA [None]
  - MONOCYTE COUNT DECREASED [None]
  - PLATELET COUNT DECREASED [None]
  - PRURITUS [None]
  - RASH [None]
